FAERS Safety Report 15858244 (Version 1)
Quarter: 2019Q1

REPORT INFORMATION
  Report Type: Spontaneous
  Country: US (occurrence: US)
  Receive Date: 20190123
  Receipt Date: 20190123
  Transmission Date: 20190417
  Serious: No
  Sender: FDA-Public Use
  Company Number: US-BRISTOL-MYERS SQUIBB COMPANY-BMS-2019-005506

PATIENT
  Sex: Male
  Weight: 48.5 kg

DRUGS (1)
  1. OPDIVO [Suspect]
     Active Substance: NIVOLUMAB
     Indication: HEAD AND NECK CANCER
     Dosage: 480 MG, UNK
     Route: 042
     Dates: start: 20181218, end: 20181218

REACTIONS (1)
  - Adverse event [Unknown]
